FAERS Safety Report 10582596 (Version 2)
Quarter: 2014Q4

REPORT INFORMATION
  Report Type: Report from Study
  Country: US (occurrence: US)
  Receive Date: 20141113
  Receipt Date: 20141113
  Transmission Date: 20150529
  Serious: Yes (Hospitalization)
  Sender: FDA-Public Use
  Company Number: US-ABBVIE-14P-163-1304255-00

PATIENT
  Age: 29 Year
  Sex: Female
  Weight: 93.98 kg

DRUGS (3)
  1. PHENTERMINE [Concomitant]
     Active Substance: PHENTERMINE
     Indication: WEIGHT DECREASED
     Dates: start: 2012
  2. KLONOPIN [Concomitant]
     Active Substance: CLONAZEPAM
     Indication: PRODUCT USED FOR UNKNOWN INDICATION
  3. LUPRON DEPOT [Suspect]
     Active Substance: LEUPROLIDE ACETATE
     Indication: ENDOMETRIOSIS
     Route: 030
     Dates: start: 20141031

REACTIONS (4)
  - Feeling abnormal [Unknown]
  - Irritability [Unknown]
  - Speech disorder [Unknown]
  - Gait disturbance [Unknown]

NARRATIVE: CASE EVENT DATE: 201411
